FAERS Safety Report 24838150 (Version 5)
Quarter: 2025Q2

REPORT INFORMATION
  Report Type: Spontaneous
  Country: CA (occurrence: CA)
  Receive Date: 20250113
  Receipt Date: 20250605
  Transmission Date: 20250716
  Serious: Yes (Hospitalization)
  Sender: PFIZER
  Company Number: CA-PFIZER INC-PV202400168456

PATIENT
  Age: 40 Year
  Sex: Female

DRUGS (7)
  1. FRAGMIN [Suspect]
     Active Substance: DALTEPARIN SODIUM
     Indication: Pulmonary embolism
     Dates: start: 20240815
  2. FRAGMIN [Suspect]
     Active Substance: DALTEPARIN SODIUM
     Dates: start: 20250101
  3. FRAGMIN [Suspect]
     Active Substance: DALTEPARIN SODIUM
     Dosage: 200 IU, DAILY [15,000 UNITS OF DALTEPARIN ONCE DAILY) = 200UNITS OF DALTEPARIN PER DAY]
  4. FRAGMIN [Suspect]
     Active Substance: DALTEPARIN SODIUM
     Dates: start: 20250110
  5. ENOXAPARIN [Concomitant]
     Active Substance: ENOXAPARIN
     Route: 058
     Dates: start: 202412
  6. PRENATAL MULTIVITAMIN + DHA [Concomitant]
     Dosage: 1 DF, DAILY
     Route: 048
     Dates: start: 202412
  7. METOPROLOL [Concomitant]
     Active Substance: METOPROLOL
     Indication: Supraventricular tachycardia
     Dosage: 50 MG, 2X/DAY
     Route: 048
     Dates: start: 202412

REACTIONS (2)
  - Supraventricular tachycardia [Unknown]
  - Maternal exposure during pregnancy [Unknown]

NARRATIVE: CASE EVENT DATE: 20241213
